FAERS Safety Report 6059080-2 (Version None)
Quarter: 2009Q1

REPORT INFORMATION
  Report Type: 
  Country: None (occurrence: None)
  Receive Date: 20090130
  Receipt Date: 20090122
  Transmission Date: 20090719
  Serious: Yes (Hospitalization)
  Sender: FDA-Public Use
  Company Number: B0556552A

PATIENT
  Age: 14 Year
  Sex: Male

DRUGS (1)
  1. AMOXICILLIN AND CLAVULANATE POTASSIUM [Suspect]
     Indication: UPPER RESPIRATORY TRACT INFECTION
     Dosage: 625MG THREE TIMES PER DAY
     Route: 048

REACTIONS (4)
  - ERYTHEMA MULTIFORME [None]
  - GENITAL LESION [None]
  - MOUTH ULCERATION [None]
  - RASH ERYTHEMATOUS [None]
